FAERS Safety Report 4613941-7 (Version None)
Quarter: 2005Q1

REPORT INFORMATION
  Report Type: 
  Country: None (occurrence: None)
  Receive Date: 20050315
  Receipt Date: 20050302
  Transmission Date: 20050727
  Serious: Yes (Death, Life-Threatening, Hospitalization, Other)
  Sender: FDA-Public Use
  Company Number: 2005-00414

PATIENT
  Age: 59 Year
  Sex: Female
  Weight: 65.4 kg

DRUGS (9)
  1. VELCADE [Suspect]
     Dosage: 1.30 MG/M2, IV BOLUS
     Route: 040
     Dates: start: 20050203, end: 20050224
  2. DIFLUCAN [Concomitant]
  3. LEVOXACIN (LEVOFLOXACIN) [Concomitant]
  4. ALLOPURINOL [Concomitant]
  5. MUCOSOLVAN (AMBROXOL HYDROCHLORIDE) [Concomitant]
  6. MYCOSTATIN [Concomitant]
  7. TAZOCIN (PIPERACILLIN SODIUM, TAZOBACTAM SODIUM) [Concomitant]
  8. NESPO (DARBEPOETIN ALFA) [Concomitant]
  9. G-CSF (GRANULOCYTE COLONY STIMULATING FACTOR) [Concomitant]

REACTIONS (8)
  - BRONCHITIS [None]
  - DIARRHOEA [None]
  - HAEMOGLOBIN DECREASED [None]
  - INTESTINAL HAEMORRHAGE [None]
  - INTESTINAL INFARCTION [None]
  - SHOCK [None]
  - THROMBOCYTOPENIA [None]
  - WHITE BLOOD CELL COUNT DECREASED [None]
